FAERS Safety Report 5089841-8 (Version None)
Quarter: 2006Q3

REPORT INFORMATION
  Report Type: 
  Country: None (occurrence: None)
  Receive Date: 20060727
  Receipt Date: 20060516
  Transmission Date: 20061208
  Serious: Yes (Other)
  Sender: FDA-Public Use
  Company Number: 2006064623

PATIENT
  Age: 93 Year
  Sex: Male

DRUGS (1)
  1. LYRICA [Suspect]
     Indication: POST HERPETIC NEURALGIA
     Dosage: 150 UNK (50 UNK, 3 IN 1 D)
     Route: 065

REACTIONS (2)
  - DISORIENTATION [None]
  - SOMNOLENCE [None]
